FAERS Safety Report 7884659-2 (Version None)
Quarter: 2011Q4

REPORT INFORMATION
  Report Type: 
  Country: None (occurrence: None)
  Receive Date: 20111102
  Receipt Date: 20111025
  Transmission Date: 20120403
  Serious: Yes (Hospitalization, Disabling, Other)
  Sender: FDA-Public Use
  Company Number: US-MERCK-1103USA00265

PATIENT
  Age: 55 Year
  Sex: Male
  Weight: 99 kg

DRUGS (18)
  1. FOSAMAX [Suspect]
     Indication: OSTEOPOROSIS
     Route: 048
     Dates: start: 19970927, end: 20011107
  2. PREDNISONE [Concomitant]
     Route: 065
  3. PROVENTIL [Concomitant]
     Dosage: PRN
     Route: 055
  4. FOSAMAX [Suspect]
     Route: 048
     Dates: start: 19980521, end: 20100301
  5. ACCOLATE [Concomitant]
     Route: 065
  6. VASOTEC [Concomitant]
     Route: 048
  7. SEREVENT [Concomitant]
     Route: 065
  8. LASIX [Concomitant]
     Route: 065
  9. AZMACORT [Concomitant]
     Route: 065
  10. FOSAMAX [Suspect]
     Route: 048
     Dates: start: 19980521, end: 20100301
  11. MEVACOR [Concomitant]
     Route: 048
  12. ALBUTEROL [Concomitant]
     Route: 065
  13. FOSAMAX PLUS D [Suspect]
     Indication: OSTEOPOROSIS
     Route: 048
     Dates: start: 20060501, end: 20100101
  14. VICODIN [Concomitant]
     Route: 065
  15. CENTRUM [Concomitant]
     Route: 065
  16. VENTOLIN DS [Concomitant]
     Route: 065
  17. ADVAIR DISKUS 100/50 [Concomitant]
     Route: 065
  18. FLEXERIL [Concomitant]
     Route: 048

REACTIONS (26)
  - HAEMORRHOIDS [None]
  - CHRONIC OBSTRUCTIVE PULMONARY DISEASE [None]
  - RECTAL HAEMORRHAGE [None]
  - PLEURAL EFFUSION [None]
  - RIB FRACTURE [None]
  - DEPRESSION [None]
  - RHINITIS ALLERGIC [None]
  - BACK PAIN [None]
  - DIVERTICULUM [None]
  - LEUKOCYTOSIS [None]
  - ARTHROPATHY [None]
  - DIVERTICULITIS [None]
  - MUSCULOSKELETAL CHEST PAIN [None]
  - ERECTILE DYSFUNCTION [None]
  - FEMUR FRACTURE [None]
  - ACUTE RESPIRATORY FAILURE [None]
  - THYROID NEOPLASM [None]
  - ANXIETY [None]
  - RADICULITIS LUMBOSACRAL [None]
  - GOITRE [None]
  - GASTROOESOPHAGEAL REFLUX DISEASE [None]
  - SPINAL COMPRESSION FRACTURE [None]
  - THORACIC VERTEBRAL FRACTURE [None]
  - IMPAIRED HEALING [None]
  - UMBILICAL HERNIA [None]
  - HIATUS HERNIA [None]
